FAERS Safety Report 23948860 (Version 2)
Quarter: 2024Q2

REPORT INFORMATION
  Report Type: Spontaneous
  Country: CN (occurrence: CN)
  Receive Date: 20240607
  Receipt Date: 20240624
  Transmission Date: 20240715
  Serious: Yes (Other)
  Sender: FDA-Public Use
  Company Number: CN-AUROBINDO-AUR-APL-2024-026568

PATIENT
  Age: 19 Year
  Sex: Male

DRUGS (11)
  1. ARIPIPRAZOLE [Interacting]
     Active Substance: ARIPIPRAZOLE
     Indication: Product used for unknown indication
     Dosage: UNK
     Route: 065
  2. VINCRISTINE [Interacting]
     Active Substance: VINCRISTINE
     Indication: Alveolar rhabdomyosarcoma
     Dosage: 1.5 MILLIGRAM PER MILLILITRE ON DAY 1, DAY 8 AND DAY 15
     Route: 065
  3. FLUCONAZOLE [Interacting]
     Active Substance: FLUCONAZOLE
     Indication: Antifungal treatment
     Dosage: UNK
     Route: 065
  4. DACTINOMYCIN [Concomitant]
     Active Substance: DACTINOMYCIN
     Indication: Alveolar rhabdomyosarcoma
     Dosage: 0.045 MILLIGRAM/KILOGRAM ON DAY 1
     Route: 065
  5. CYCLOPHOSPHAMIDE [Concomitant]
     Active Substance: CYCLOPHOSPHAMIDE
     Indication: Alveolar rhabdomyosarcoma
     Dosage: 1.2 G/M  ON DAY 1
     Route: 065
  6. IRINOTECAN [Concomitant]
     Active Substance: IRINOTECAN
     Indication: Alveolar rhabdomyosarcoma
     Dosage: 250 MILLIGRAM/SQ. METER
     Route: 065
  7. ETOPOSIDE [Concomitant]
     Active Substance: ETOPOSIDE
     Indication: Alveolar rhabdomyosarcoma
     Dosage: 450 MILLIGRAM/SQ. METER
     Route: 065
  8. BEVACIZUMAB [Concomitant]
     Active Substance: BEVACIZUMAB
     Indication: Alveolar rhabdomyosarcoma
     Dosage: 7.5 MILLIGRAM/KILOGRAM, CYCLICAL
     Route: 065
  9. CARBOPLATIN [Concomitant]
     Active Substance: CARBOPLATIN
     Indication: Alveolar rhabdomyosarcoma
     Dosage: 560 MILLIGRAM/KILOGRAM, CYCLICAL
     Route: 065
  10. IFOSFAMIDE [Concomitant]
     Active Substance: IFOSFAMIDE
     Indication: Product used for unknown indication
     Dosage: UNK
     Route: 065
  11. ADRIAMYCIN [Concomitant]
     Active Substance: DOXORUBICIN HYDROCHLORIDE
     Indication: Product used for unknown indication
     Dosage: UNK
     Route: 065

REACTIONS (2)
  - Neuropathy peripheral [Recovering/Resolving]
  - Drug interaction [Recovering/Resolving]
